FAERS Safety Report 5289421-5 (Version None)
Quarter: 2007Q2

REPORT INFORMATION
  Report Type: 
  Country: None (occurrence: None)
  Receive Date: 20070406
  Receipt Date: 20070322
  Transmission Date: 20071010
  Serious: Yes (Other)
  Sender: FDA-Public Use
  Company Number: CA-JNJFOC-20051204063

PATIENT
  Sex: Male
  Weight: 103.42 kg

DRUGS (5)
  1. REMICADE [Suspect]
     Indication: RHEUMATOID ARTHRITIS
     Dosage: PATIENT'S 15TH INFUSION
     Route: 042
  2. METHOTREXATE [Concomitant]
     Route: 048
  3. NAPROSYN [Concomitant]
     Route: 048
  4. SOLU-MEDROL [Concomitant]
     Indication: PREMEDICATION
     Dosage: 100 MG IN 50 CC NORMAL SALINE
     Route: 042
  5. BENADRYL [Concomitant]
     Indication: PREMEDICATION
     Dosage: 50 MG IN 50 CC NORMAL SALINE
     Route: 042

REACTIONS (12)
  - BACK PAIN [None]
  - BLOOD PRESSURE INCREASED [None]
  - CYANOSIS [None]
  - DYSPNOEA [None]
  - HYPOXIA [None]
  - INFUSION RELATED REACTION [None]
  - PALLOR [None]
  - RHEUMATOID ARTHRITIS [None]
  - TACHYCARDIA [None]
  - TACHYPNOEA [None]
  - TREMOR [None]
  - WHEEZING [None]
